FAERS Safety Report 7961553-X (Version None)
Quarter: 2011Q4

REPORT INFORMATION
  Report Type: 
  Country: None (occurrence: None)
  Receive Date: 20111207
  Receipt Date: 20111125
  Transmission Date: 20120403
  Serious: Yes (Other)
  Sender: FDA-Public Use
  Company Number: PHHY2011BR104128

PATIENT
  Sex: Female
  Weight: 58 kg

DRUGS (2)
  1. DIOVAN HCT [Suspect]
     Dosage: 1 DF, (80/12.5MG) DAILY
     Route: 048
     Dates: start: 20100101
  2. DIOVAN HCT [Suspect]
     Indication: HYPERTENSION
     Dosage: 1 DF, (160/12.5MG) DAILY
     Route: 048
     Dates: start: 20080101, end: 20100101

REACTIONS (4)
  - SOMNOLENCE [None]
  - FALL [None]
  - PRESYNCOPE [None]
  - BLOOD PRESSURE FLUCTUATION [None]
